FAERS Safety Report 20060397 (Version 3)
Quarter: 2021Q4

REPORT INFORMATION
  Report Type: Spontaneous
  Country: CZ (occurrence: CZ)
  Receive Date: 20211112
  Receipt Date: 20211208
  Transmission Date: 20220304
  Serious: Yes (Other)
  Sender: FDA-Public Use
  Company Number: CZ-CELLTRION INC.-2021CZ015079

PATIENT

DRUGS (14)
  1. RITUXIMAB [Suspect]
     Active Substance: RITUXIMAB
     Indication: Marginal zone lymphoma
     Dosage: UNK (WITH CHOP)/6 X R-CHOP THERAPY, 5TH + 6TH CHEMOTHERAPEUTIC CYCLE IS REDUCED TO 75 PERCENTAGE OF
     Route: 065
     Dates: start: 201903, end: 201907
  2. RITUXIMAB [Suspect]
     Active Substance: RITUXIMAB
     Dosage: UNK (WITH BENDAMUSTINE)
     Dates: start: 202011
  3. CYCLOPHOSPHAMIDE [Suspect]
     Active Substance: CYCLOPHOSPHAMIDE
     Indication: Marginal zone lymphoma
     Dosage: 6 X R-CHOP THERAPY, 5TH + 6TH CHEMOTHERAPEUTIC CYCLE IS REDUCED TO 75 PERCENTAGE OF THE ORIGINAL DOS
     Route: 065
     Dates: start: 201903, end: 201907
  4. DOXORUBICIN HYDROCHLORIDE [Suspect]
     Active Substance: DOXORUBICIN HYDROCHLORIDE
     Indication: Marginal zone lymphoma
     Dosage: 6 X R-CHOP THERAPY, 5TH + 6TH CHEMOTHERAPEUTIC CYCLE IS REDUCED TO 75 PERCENTAGE OF THE ORIGINAL DOS
     Route: 065
     Dates: start: 201903, end: 201907
  5. VINCRISTINE SULFATE [Suspect]
     Active Substance: VINCRISTINE SULFATE
     Indication: Marginal zone lymphoma
     Dosage: 6 X R-CHOP THERAPY, 5TH PLUS 6TH CHEMOTHERAPEUTIC CYCLE IS REDUCED TO 75 PERCENTAGE OF THE ORIGINAL
     Route: 065
     Dates: start: 201903, end: 201907
  6. PREDNISONE [Suspect]
     Active Substance: PREDNISONE
     Indication: Marginal zone lymphoma
     Dosage: 6 X R-CHOP THERAPY, 5TH + 6TH CHEMOTHERAPEUTIC CYCLE IS REDUCED TO 75 PERCENTAGE OF THE ORIGINAL DOS
     Route: 065
     Dates: start: 201903, end: 201907
  7. VINCRISTINE [Suspect]
     Active Substance: VINCRISTINE
     Indication: Marginal zone lymphoma
     Dosage: 6 X R-CHOP THERAPY, 5TH + 6TH CHEMOTHERAPEUTIC CYCLE IS REDUCED TO 75 PERCENTAGE OF THE ORIGINAL DOS
     Route: 065
     Dates: start: 201903, end: 201907
  8. BENDAMUSTINE [Suspect]
     Active Substance: BENDAMUSTINE
     Indication: Marginal zone lymphoma
     Dosage: UNK
     Dates: start: 202011
  9. MABTHERA [Suspect]
     Active Substance: RITUXIMAB
     Indication: Marginal zone lymphoma
  10. CYCLOPHOSPHAMIDE\DOXORUBICIN\PREDNISONE\VINCRISTINE [Suspect]
     Active Substance: CYCLOPHOSPHAMIDE\DOXORUBICIN\PREDNISONE\VINCRISTINE
     Indication: Marginal zone lymphoma
     Dosage: UNK
     Dates: start: 201903, end: 201907
  11. RITUXIMAB [Suspect]
     Active Substance: RITUXIMAB
     Indication: Marginal zone lymphoma
     Dosage: UNK
     Dates: start: 202011
  12. LENALIDOMIDE [Suspect]
     Active Substance: LENALIDOMIDE
     Indication: Marginal zone lymphoma
  13. GEMCITABINE [Suspect]
     Active Substance: GEMCITABINE
     Indication: Marginal zone lymphoma
     Dosage: UNK
     Dates: start: 202104
  14. OXALIPLATIN [Suspect]
     Active Substance: OXALIPLATIN
     Indication: Marginal zone lymphoma
     Dosage: UNK
     Dates: start: 202104

REACTIONS (11)
  - Concomitant disease aggravated [Recovered/Resolved]
  - Marginal zone lymphoma recurrent [Unknown]
  - Parkinson^s disease [Recovered/Resolved]
  - COVID-19 [Unknown]
  - Cytopenia [Not Recovered/Not Resolved]
  - Tremor [Recovered/Resolved]
  - Nausea [Unknown]
  - Pain [Unknown]
  - Rash pruritic [Unknown]
  - Vomiting [Unknown]
  - Off label use [Unknown]

NARRATIVE: CASE EVENT DATE: 20200901
